FAERS Safety Report 7871581-0 (Version None)
Quarter: 2011Q4

REPORT INFORMATION
  Report Type: 
  Country: None (occurrence: None)
  Receive Date: 20111029
  Receipt Date: 20110303
  Transmission Date: 20120403
  Serious: No
  Sender: FDA-Public Use
  Company Number: US-AMGEN-USASP2011012093

PATIENT
  Sex: Male

DRUGS (2)
  1. ENBREL [Suspect]
     Indication: RHEUMATOID ARTHRITIS
     Dosage: 50 MG, QWK
     Dates: start: 20100701
  2. ENBREL [Suspect]
     Indication: REITER'S SYNDROME

REACTIONS (7)
  - PAIN IN EXTREMITY [None]
  - BACK PAIN [None]
  - FLUSHING [None]
  - ARTHRALGIA [None]
  - PYREXIA [None]
  - PAIN [None]
  - HYPERTENSION [None]
